FAERS Safety Report 9999444 (Version 2)
Quarter: 2014Q2

REPORT INFORMATION
  Report Type: Spontaneous
  Country: US (occurrence: US)
  Receive Date: 20140312
  Receipt Date: 20140424
  Transmission Date: 20141212
  Serious: Yes (Hospitalization)
  Sender: FDA-Public Use
  Company Number: US-SA-2014SA030054

PATIENT
  Age: 69 Year
  Sex: Female

DRUGS (2)
  1. FABRAZYME [Suspect]
     Indication: FABRY^S DISEASE
     Dosage: 2*35 MG VIALS AND 5*5 MG VIALS
     Route: 042
     Dates: start: 200805, end: 20140403
  2. FABRAZYME [Suspect]
     Indication: FABRY^S DISEASE
     Dosage: 2*35 MG VIALS AND 5*5 MG VIALS
     Route: 042
     Dates: start: 200805, end: 20140403

REACTIONS (3)
  - Fluid overload [Unknown]
  - Haemorrhage [Not Recovered/Not Resolved]
  - Ascites [Unknown]
